FAERS Safety Report 18327499 (Version 1)
Quarter: 2020Q3

REPORT INFORMATION
  Report Type: Spontaneous
  Country: SE (occurrence: SE)
  Receive Date: 20200930
  Receipt Date: 20200930
  Transmission Date: 20201103
  Serious: Yes (Hospitalization, Other)
  Sender: FDA-Public Use
  Company Number: SE-SUN PHARMACEUTICAL INDUSTRIES LTD-2020R1-262226

PATIENT
  Age: 68 Year
  Sex: Male

DRUGS (1)
  1. AMLODIPINE [Suspect]
     Active Substance: AMLODIPINE BESYLATE
     Indication: PRODUCT USED FOR UNKNOWN INDICATION
     Dosage: UNK
     Route: 065

REACTIONS (4)
  - Poisoning [Unknown]
  - Suicide attempt [Unknown]
  - Non-cardiogenic pulmonary oedema [Unknown]
  - Overdose [Unknown]
